FAERS Safety Report 14971920 (Version 2)
Quarter: 2018Q3

REPORT INFORMATION
  Report Type: Spontaneous
  Country: JP (occurrence: JP)
  Receive Date: 20180605
  Receipt Date: 20180724
  Transmission Date: 20181010
  Serious: Yes (Death, Hospitalization)
  Sender: FDA-Public Use
  Company Number: JP-B.I. PHARMACEUTICALS,INC./RIDGEFIELD-2018-NB-000149

PATIENT
  Age: 84 Year
  Sex: Male
  Weight: 67 kg

DRUGS (12)
  1. THEOLONG [Concomitant]
     Active Substance: THEOPHYLLINE ANHYDROUS
     Indication: ASTHMA
     Route: 048
     Dates: start: 20170724, end: 20180101
  2. RISPERDAL [Concomitant]
     Active Substance: RISPERIDONE
     Indication: SCHIZOPHRENIA
     Route: 048
     Dates: start: 20171003, end: 20180101
  3. LASIX [Concomitant]
     Active Substance: FUROSEMIDE
     Indication: OEDEMA
     Route: 048
     Dates: start: 20170731, end: 20171003
  4. ALDACTONE A [Concomitant]
     Active Substance: SPIRONOLACTONE
     Indication: OEDEMA
     Route: 048
     Dates: start: 20170722, end: 20171003
  5. MICARDIS [Concomitant]
     Active Substance: TELMISARTAN
     Indication: HYPERTENSION
     Route: 048
     Dates: start: 20110419, end: 20171003
  6. LASIX [Concomitant]
     Active Substance: FUROSEMIDE
     Indication: OEDEMA
     Route: 048
     Dates: start: 20171004, end: 20180101
  7. PRAZAXA [Suspect]
     Active Substance: DABIGATRAN ETEXILATE MESYLATE
     Indication: EMBOLISM
     Route: 048
     Dates: start: 20170731, end: 20171003
  8. MAGNESIUM OXIDE. [Concomitant]
     Active Substance: MAGNESIUM OXIDE
     Indication: CONSTIPATION
     Route: 048
     Dates: start: 20170715, end: 20171129
  9. FRANDOL S [Concomitant]
     Active Substance: ISOSORBIDE DINITRATE
     Indication: ANGINA PECTORIS
     Route: 065
     Dates: start: 20170722, end: 20180101
  10. SIGMART [Concomitant]
     Active Substance: NICORANDIL
     Indication: ANGINA PECTORIS
     Route: 048
     Dates: start: 20170722, end: 20180101
  11. MUCOSTA [Concomitant]
     Active Substance: REBAMIPIDE
     Indication: GASTRITIS
     Route: 048
     Dates: start: 20110419, end: 20171003
  12. LUNESTA [Concomitant]
     Active Substance: ESZOPICLONE
     Indication: INSOMNIA
     Route: 048
     Dates: start: 20171003, end: 20180101

REACTIONS (5)
  - Cardiac failure chronic [Fatal]
  - Hiatus hernia [Unknown]
  - Atrial fibrillation [Fatal]
  - Oesophageal ulcer [Recovered/Resolved]
  - Renal failure [Fatal]

NARRATIVE: CASE EVENT DATE: 20171003
